FAERS Safety Report 18109495 (Version 2)
Quarter: 2020Q3

REPORT INFORMATION
  Report Type: Report from Study
  Country: US (occurrence: US)
  Receive Date: 20200804
  Receipt Date: 20200918
  Transmission Date: 20201103
  Serious: Yes (Hospitalization, Other)
  Sender: FDA-Public Use
  Company Number: US-SHIRE-US202024654

PATIENT
  Sex: Female

DRUGS (1)
  1. HUMAN NORMAL IMMUNOGLOBULIN [Suspect]
     Active Substance: HUMAN IMMUNOGLOBULIN G
     Indication: PRIMARY IMMUNODEFICIENCY SYNDROME
     Dosage: 15 GRAM, 1X/WEEK
     Route: 058

REACTIONS (5)
  - Suspected COVID-19 [Unknown]
  - Clostridium difficile infection [Unknown]
  - Intracranial aneurysm [Unknown]
  - Meningitis aseptic [Unknown]
  - Fatigue [Unknown]
